FAERS Safety Report 9776027 (Version 1)
Quarter: 2013Q4

REPORT INFORMATION
  Report Type: Spontaneous
  Country: US (occurrence: US)
  Receive Date: 20131220
  Receipt Date: 20131220
  Transmission Date: 20140711
  Serious: No
  Sender: FDA-Public Use
  Company Number: US-MYLANLABS-2013S1019296

PATIENT
  Sex: Female

DRUGS (1)
  1. DOXYCYCLINE [Suspect]

REACTIONS (1)
  - Abdominal discomfort [Not Recovered/Not Resolved]
